FAERS Safety Report 5254736-3 (Version None)
Quarter: 2007Q1

REPORT INFORMATION
  Report Type: 
  Country: None (occurrence: None)
  Receive Date: 20070228
  Receipt Date: 20070212
  Transmission Date: 20070707
  Serious: Yes (Hospitalization, Congenital Anomaly)
  Sender: FDA-Public Use
  Company Number: 2007AP000147

PATIENT
  Sex: Male
  Weight: 2.9937 kg

DRUGS (1)
  1. PAROXETINE HCL [Suspect]
     Indication: DEPRESSION
     Dosage: 20 MG; QD; TRPL
     Route: 064
     Dates: start: 20051101, end: 20060725

REACTIONS (3)
  - DRUG EXPOSURE DURING PREGNANCY [None]
  - MELANOCYTIC NAEVUS [None]
  - WOUND INFECTION [None]
